FAERS Safety Report 9476884 (Version 3)
Quarter: 2014Q1

REPORT INFORMATION
  Report Type: Report from Study
  Country: US (occurrence: US)
  Receive Date: 20130826
  Receipt Date: 20140107
  Transmission Date: 20141002
  Serious: Yes (Hospitalization)
  Sender: FDA-Public Use
  Company Number: US-GLAXOSMITHKLINE-A1038258A

PATIENT
  Age: 87 Year
  Sex: Male
  Weight: 63.5 kg

DRUGS (7)
  1. PAZOPANIB [Suspect]
     Indication: RENAL CELL CARCINOMA
     Route: 048
  2. AMLODIPINE [Concomitant]
     Indication: HYPERTENSION
     Route: 048
     Dates: start: 20130701, end: 20130821
  3. ASPIRIN [Concomitant]
     Dosage: 325MG PER DAY
     Route: 048
     Dates: start: 20130821, end: 20130824
  4. CLONIDINE [Concomitant]
     Indication: HYPERTENSION
     Dosage: 2MG WEEKLY
     Route: 050
     Dates: start: 20130819
  5. ENOXAPARIN [Concomitant]
     Indication: PROPHYLAXIS
     Dosage: 60MG PER DAY
     Route: 048
     Dates: start: 20130819, end: 20130823
  6. VALSARTAN [Concomitant]
     Route: 048
     Dates: start: 20130822, end: 20130824
  7. STEROID [Concomitant]
     Route: 042

REACTIONS (1)
  - Hyponatraemia [Recovering/Resolving]
